FAERS Safety Report 18927635 (Version 2)
Quarter: 2021Q1

REPORT INFORMATION
  Report Type: Spontaneous
  Country: US (occurrence: US)
  Receive Date: 20210223
  Receipt Date: 20210325
  Transmission Date: 20210420
  Serious: Yes (Hospitalization)
  Sender: FDA-Public Use
  Company Number: US-DRREDDYS-USA/USA/21/0132254

PATIENT
  Age: 59 Year
  Sex: Female

DRUGS (11)
  1. OCTREOTIDE. [Concomitant]
     Active Substance: OCTREOTIDE
     Dosage: INCREASED
  2. OCTREOTIDE. [Concomitant]
     Active Substance: OCTREOTIDE
  3. OCTREOTIDE. [Concomitant]
     Active Substance: OCTREOTIDE
  4. OCTREOTIDE. [Concomitant]
     Active Substance: OCTREOTIDE
  5. DOBUTAMINE HYDROCHLORIDE. [Suspect]
     Active Substance: DOBUTAMINE HYDROCHLORIDE
     Indication: CARDIOGENIC SHOCK
  6. NITROPRUSSIDE [Suspect]
     Active Substance: NITROPRUSSIDE
     Indication: CARDIOGENIC SHOCK
  7. MILRINONE [Suspect]
     Active Substance: MILRINONE
     Indication: CARDIOGENIC SHOCK
  8. VASOPRESSIN. [Suspect]
     Active Substance: VASOPRESSIN
     Indication: CARDIOGENIC SHOCK
  9. OCTREOTIDE. [Concomitant]
     Active Substance: OCTREOTIDE
     Indication: CARCINOID SYNDROME
  10. OCTREOTIDE. [Concomitant]
     Active Substance: OCTREOTIDE
     Dosage: WIDEN HER NARROW PULSE PRESSURE FROM PRESUMED CATECHOLAMINE?DRIVEN VASOCONSTRICTION
  11. OCTREOTIDE. [Concomitant]
     Active Substance: OCTREOTIDE
     Dosage: DECREASED

REACTIONS (2)
  - Drug ineffective [Recovered/Resolved]
  - Carcinoid crisis [Recovered/Resolved]
